FAERS Safety Report 6669279-X (Version None)
Quarter: 2010Q2

REPORT INFORMATION
  Report Type: 
  Country: None (occurrence: None)
  Receive Date: 20100406
  Receipt Date: 20100330
  Transmission Date: 20101027
  Serious: Yes (Other)
  Sender: FDA-Public Use
  Company Number: A0853010A

PATIENT
  Sex: Female

DRUGS (1)
  1. NICORETTE [Suspect]
     Indication: DRUG USE FOR UNKNOWN INDICATION
     Dosage: 80MG PER DAY
     Route: 002

REACTIONS (2)
  - DIABETES MELLITUS [None]
  - INTENTIONAL DRUG MISUSE [None]
